FAERS Safety Report 10223587 (Version 1)
Quarter: 2014Q2

REPORT INFORMATION
  Report Type: Report from Study
  Country: US (occurrence: US)
  Receive Date: 20140609
  Receipt Date: 20140609
  Transmission Date: 20141212
  Serious: Yes (Hospitalization, Other)
  Sender: FDA-Public Use
  Company Number: US-ROCHE-1413789

PATIENT
  Age: 2 Year
  Sex: Male
  Weight: 11.55 kg

DRUGS (20)
  1. NUTROPIN AQ [Suspect]
     Indication: RENAL FAILURE CHRONIC
     Route: 058
     Dates: end: 201405
  2. NUTROPIN AQ [Suspect]
     Route: 058
  3. AMLODIPINE [Concomitant]
     Dosage: 1MG/ML ORAL SUSPENSION
     Route: 048
  4. ASPIRIN [Concomitant]
     Dosage: HALF TAB PER G TUBE
     Route: 065
  5. CALCITROL [Concomitant]
     Route: 048
  6. VITAMIN D3 [Concomitant]
     Indication: CONSTIPATION
     Route: 048
  7. COLACE [Concomitant]
     Indication: CONSTIPATION
     Route: 048
  8. AQUAPHOR (UNITED STATES) [Concomitant]
     Indication: DRY SKIN
     Route: 061
  9. LOVENOX [Concomitant]
     Route: 065
  10. EPOGEN [Concomitant]
     Route: 065
  11. FERROUS SULPHATE [Concomitant]
     Route: 065
  12. GENTAMICIN [Concomitant]
     Route: 061
  13. HEPARIN SODIUM [Concomitant]
     Route: 065
  14. ATARAX [Concomitant]
     Route: 048
  15. ELAMAX [Concomitant]
     Route: 061
  16. FISH OIL [Concomitant]
  17. OMEPRAZOLE [Concomitant]
     Route: 048
  18. GLYCOLAX [Concomitant]
     Route: 048
  19. POTASSIUM CHLORIDE [Concomitant]
     Route: 048
  20. NEPHRO-VITE [Concomitant]
     Route: 048

REACTIONS (12)
  - Pyrexia [Unknown]
  - Device related sepsis [Unknown]
  - Upper respiratory tract infection [Unknown]
  - Hyperkalaemia [Unknown]
  - Cough [Unknown]
  - Azotaemia [Unknown]
  - Eczema [Unknown]
  - Obesity [Unknown]
  - Tooth discolouration [Unknown]
  - Ear pruritus [Unknown]
  - Muscular weakness [Unknown]
  - Headache [Unknown]
